FAERS Safety Report 15330602 (Version 1)
Quarter: 2018Q3

REPORT INFORMATION
  Report Type: Spontaneous
  Country: US (occurrence: US)
  Receive Date: 20180829
  Receipt Date: 20180829
  Transmission Date: 20181010
  Serious: Yes (Other)
  Sender: FDA-Public Use
  Company Number: US-PFIZER INC-2018110292

PATIENT
  Age: 68 Year
  Sex: Female
  Weight: 62.59 kg

DRUGS (1)
  1. XALKORI [Suspect]
     Active Substance: CRIZOTINIB
     Dosage: UNK

REACTIONS (6)
  - Haemorrhage subcutaneous [Unknown]
  - Seizure [Unknown]
  - Vomiting [Unknown]
  - Loss of consciousness [Unknown]
  - Hallucination [Unknown]
  - Chills [Unknown]
